FAERS Safety Report 4693655-8 (Version None)
Quarter: 2005Q2

REPORT INFORMATION
  Report Type: 
  Country: None (occurrence: None)
  Receive Date: 20050617
  Receipt Date: 20050613
  Transmission Date: 20051028
  Serious: Yes (Hospitalization, Other)
  Sender: FDA-Public Use
  Company Number: 2005GB01158

PATIENT
  Sex: Female
  Weight: 102 kg

DRUGS (5)
  1. LISINOPRIL [Suspect]
     Indication: HYPERTENSION
     Route: 048
     Dates: start: 20050323, end: 20050324
  2. LISINOPRIL [Suspect]
     Indication: CONGENITAL CYSTIC KIDNEY DISEASE
     Route: 048
     Dates: start: 20050323, end: 20050324
  3. MICRONOR [Concomitant]
     Indication: CONTRACEPTION
     Route: 048
     Dates: start: 20041229
  4. SALBUTAMOL [Concomitant]
     Indication: ASTHMA
     Route: 055
  5. FLUTICASONE PROPIONATE [Concomitant]
     Indication: ASTHMA
     Route: 055

REACTIONS (3)
  - DIZZINESS [None]
  - GRAND MAL CONVULSION [None]
  - PALPITATIONS [None]
